FAERS Safety Report 8407747-0 (Version None)
Quarter: 2012Q2

REPORT INFORMATION
  Report Type: 
  Country: None (occurrence: None)
  Receive Date: 20120604
  Receipt Date: 20120525
  Transmission Date: 20120825
  Serious: Yes (Hospitalization)
  Sender: FDA-Public Use
  Company Number: US-GLAXOSMITHKLINE-A0979107A

PATIENT
  Age: 64 Year
  Sex: Female

DRUGS (9)
  1. METOPROLOL TARTRATE [Concomitant]
  2. MULTI-VITAMIN [Concomitant]
  3. SYNTHROID [Concomitant]
  4. LISINOPRIL [Concomitant]
  5. RESTORIL [Concomitant]
  6. LAMICTAL [Suspect]
     Indication: BIPOLAR DISORDER
     Dosage: 200MG TWICE PER DAY
     Route: 048
  7. PROTONIX [Concomitant]
  8. PROPRANOLOL [Concomitant]
  9. HYDROCHLOROTHIAZIDE [Concomitant]

REACTIONS (3)
  - FEMUR FRACTURE [None]
  - TENDONITIS [None]
  - FALL [None]
